FAERS Safety Report 15287782 (Version 1)
Quarter: 2018Q3

REPORT INFORMATION
  Report Type: Spontaneous
  Country: US (occurrence: US)
  Receive Date: 20180817
  Receipt Date: 20180817
  Transmission Date: 20181010
  Serious: No
  Sender: FDA-Public Use
  Company Number: US-TEVA-2018-US-942377

PATIENT
  Sex: Female

DRUGS (1)
  1. DICLOXACILLIN [Suspect]
     Active Substance: DICLOXACILLIN

REACTIONS (1)
  - Dysphagia [Unknown]
